FAERS Safety Report 4694969-8 (Version None)
Quarter: 2005Q2

REPORT INFORMATION
  Report Type: 
  Country: None (occurrence: None)
  Receive Date: 20050617
  Receipt Date: 20050603
  Transmission Date: 20051028
  Serious: Yes (Other)
  Sender: FDA-Public Use
  Company Number: 230015M04ESP

PATIENT
  Age: 32 Year
  Sex: Female

DRUGS (1)
  1. REBIF [Suspect]
     Indication: RELAPSING-REMITTING MULTIPLE SCLEROSIS
     Dosage: 44 MCG, 3 IN 1 WEEKS, SUBCUTANEOUS
     Route: 058
     Dates: start: 20040701

REACTIONS (5)
  - INFLUENZA LIKE ILLNESS [None]
  - PHOTOPSIA [None]
  - RETINAL EXUDATES [None]
  - RETINAL INFARCTION [None]
  - VISION BLURRED [None]
